FAERS Safety Report 20486568 (Version 1)
Quarter: 2022Q1

REPORT INFORMATION
  Report Type: Spontaneous
  Country: US (occurrence: US)
  Receive Date: 20220217
  Receipt Date: 20220217
  Transmission Date: 20220423
  Serious: Yes (Death, Hospitalization, Other)
  Sender: FDA-Public Use
  Company Number: US-PFIZER INC-202200268519

PATIENT
  Age: 15 Year
  Sex: Male

DRUGS (8)
  1. ALPRAZOLAM [Suspect]
     Active Substance: ALPRAZOLAM
     Dosage: UNK (INGESTION)
     Route: 048
  2. SERTRALINE HYDROCHLORIDE [Suspect]
     Active Substance: SERTRALINE HYDROCHLORIDE
     Dosage: UNK (INGESTION)
     Route: 048
  3. PREGABALIN [Suspect]
     Active Substance: PREGABALIN
     Dosage: UNK (INGESTION)
     Route: 048
  4. LABETALOL HYDROCHLORIDE [Suspect]
     Active Substance: LABETALOL HYDROCHLORIDE
     Dosage: UNK (INGESTION)
     Route: 048
  5. CLONAZEPAM [Suspect]
     Active Substance: CLONAZEPAM
     Dosage: UNK (INGESTION)
     Route: 048
  6. LOSARTAN [Suspect]
     Active Substance: LOSARTAN
     Dosage: UNK (INGESTION)
     Route: 048
  7. LISINOPRIL [Suspect]
     Active Substance: LISINOPRIL
     Dosage: UNK (INGESTION)
     Route: 048
  8. RIVAROXABAN [Suspect]
     Active Substance: RIVAROXABAN
     Dosage: UNK (INGESTION)
     Route: 048

REACTIONS (1)
  - Completed suicide [Fatal]

NARRATIVE: CASE EVENT DATE: 20200101
